FAERS Safety Report 5545102-1 (Version None)
Quarter: 2007Q4

REPORT INFORMATION
  Report Type: 
  Country: None (occurrence: None)
  Receive Date: 20071210
  Receipt Date: 20070116
  Transmission Date: 20080405
  Serious: No
  Sender: FDA-Public Use
  Company Number: US-AMGEN-KDL207273

PATIENT
  Sex: Female

DRUGS (2)
  1. ENBREL [Suspect]
     Indication: RHEUMATOID ARTHRITIS
     Route: 058
     Dates: start: 20050501, end: 20070109
  2. METHOTREXATE [Concomitant]

REACTIONS (6)
  - DYSPNOEA [None]
  - EYE SWELLING [None]
  - HOT FLUSH [None]
  - HYPERSENSITIVITY [None]
  - RASH [None]
  - URTICARIA [None]
